FAERS Safety Report 18989329 (Version 1)
Quarter: 2021Q1

REPORT INFORMATION
  Report Type: Report from Study
  Country: US (occurrence: US)
  Receive Date: 20210309
  Receipt Date: 20210309
  Transmission Date: 20210420
  Serious: Yes (Hospitalization)
  Sender: FDA-Public Use
  Company Number: US-BIOGEN-2021BI00985902

PATIENT
  Sex: Male

DRUGS (1)
  1. TECFIDERA [Suspect]
     Active Substance: DIMETHYL FUMARATE
     Indication: MATERNAL EXPOSURE TIMING UNSPECIFIED
     Route: 064
     Dates: start: 20140821

REACTIONS (4)
  - Breech presentation [Recovered/Resolved]
  - Foetal heart rate decreased [Recovered/Resolved]
  - Body height below normal [Unknown]
  - Foetal exposure during pregnancy [Recovered/Resolved]
